FAERS Safety Report 11565181 (Version 1)
Quarter: 2015Q3

REPORT INFORMATION
  Report Type: Spontaneous
  Country: US (occurrence: US)
  Receive Date: 20150916
  Receipt Date: 20150916
  Transmission Date: 20151125
  Serious: No
  Sender: FDA-Public Use
  Company Number: US-ELI_LILLY_AND_COMPANY-US200904003823

PATIENT
  Sex: Female

DRUGS (7)
  1. FORTEO [Suspect]
     Active Substance: TERIPARATIDE
     Dosage: UNK, UNK
     Dates: start: 200804, end: 20090114
  2. FORTEO [Suspect]
     Active Substance: TERIPARATIDE
     Dosage: UNK, QOD
     Dates: start: 20090115
  3. LEVOTHYROXINE. [Concomitant]
     Active Substance: LEVOTHYROXINE
     Dosage: 1/2 TABLET
  4. CLOBETASOL PROPIONATE. [Concomitant]
     Active Substance: CLOBETASOL PROPIONATE
     Dosage: UNK, 2/D
  5. OSCAL 500-D [Concomitant]
     Dosage: UNK, 3/D
  6. CETIRIZINE [Concomitant]
     Active Substance: CETIRIZINE HYDROCHLORIDE
     Dosage: 10 MG, UNK
  7. ASPIRIN. [Concomitant]
     Active Substance: ASPIRIN

REACTIONS (5)
  - Expired product administered [Unknown]
  - Blood calcium increased [Recovered/Resolved]
  - Ill-defined disorder [Not Recovered/Not Resolved]
  - Blood glucose increased [Unknown]
  - Type 2 diabetes mellitus [Not Recovered/Not Resolved]

NARRATIVE: CASE EVENT DATE: 20081226
